FAERS Safety Report 20695560 (Version 1)
Quarter: 2022Q2

REPORT INFORMATION
  Report Type: Spontaneous
  Country: CA (occurrence: CA)
  Receive Date: 20220411
  Receipt Date: 20220411
  Transmission Date: 20220721
  Serious: No
  Sender: FDA-Public Use
  Company Number: CA-NOVARTISPH-NVSC2022CA080322

PATIENT
  Age: 39 Year
  Sex: Female

DRUGS (1)
  1. MAYZENT [Suspect]
     Active Substance: SIPONIMOD
     Indication: Multiple sclerosis
     Dosage: 2 MG, QD (1 EVERY 1 DAYS)
     Route: 048

REACTIONS (3)
  - Abdominal distension [Unknown]
  - Blindness transient [Unknown]
  - Abdominal pain [Unknown]
